FAERS Safety Report 23153421 (Version 2)
Quarter: 2024Q1

REPORT INFORMATION
  Report Type: Report from Study
  Country: US (occurrence: US)
  Receive Date: 20231107
  Receipt Date: 20240101
  Transmission Date: 20240410
  Serious: Yes (Hospitalization, Other)
  Sender: FDA-Public Use
  Company Number: US-002147023-NVSC2023US236968

PATIENT
  Sex: Male

DRUGS (1)
  1. AFINITOR [Suspect]
     Active Substance: EVEROLIMUS
     Indication: Product used for unknown indication
     Dosage: 10 MG, QD (14-DAY TRIAL FROM MDO)
     Route: 048
     Dates: start: 20231022, end: 20231029

REACTIONS (4)
  - Renal failure [Unknown]
  - Electrolyte depletion [Unknown]
  - Decreased appetite [Unknown]
  - Ill-defined disorder [Unknown]
